FAERS Safety Report 5883330-6 (Version None)
Quarter: 2008Q3

REPORT INFORMATION
  Report Type: 
  Country: None (occurrence: None)
  Receive Date: 20080910
  Receipt Date: 20080825
  Transmission Date: 20090109
  Serious: Yes (Other)
  Sender: FDA-Public Use
  Company Number: 8036713

PATIENT
  Age: 52 Year
  Sex: Female

DRUGS (3)
  1. KEPPRA [Suspect]
     Indication: CONVULSION PROPHYLAXIS
     Dosage: 500 MG 2/D PO
     Route: 048
     Dates: start: 20080509
  2. TEMODAL [Suspect]
     Indication: GLIOBLASTOMA
     Dosage: 120 MG 1/D PO
     Route: 048
     Dates: start: 20080609, end: 20080708
  3. DEXAMETHASONE [Concomitant]

REACTIONS (2)
  - METRORRHAGIA [None]
  - PANCYTOPENIA [None]
